FAERS Safety Report 22530502 (Version 1)
Quarter: 2023Q2

REPORT INFORMATION
  Report Type: Report from Study
  Country: EG (occurrence: EG)
  Receive Date: 20230607
  Receipt Date: 20230607
  Transmission Date: 20230721
  Serious: Yes (Hospitalization, Other)
  Sender: FDA-Public Use
  Company Number: EG-002147023-NVSC2023EG127508

PATIENT
  Age: 81 Year
  Sex: Female

DRUGS (9)
  1. KISQALI [Suspect]
     Active Substance: RIBOCICLIB
     Indication: Breast cancer metastatic
     Dosage: 3 DOSAGE FORM, QD, (SHE STOPPED IT AFTER 18 OR 19 DAYS FROM STARTING IT (SHE TOOK ONE AND HALF PACK
     Route: 048
     Dates: start: 20230218
  2. KISQALI [Suspect]
     Active Substance: RIBOCICLIB
     Dosage: 200 MG
     Route: 048
  3. FEMARA [Suspect]
     Active Substance: LETROZOLE
     Indication: Breast cancer
     Dosage: UNK (5 YEARS AGO, SHE TOOK IT FOR 5 YEARS WHEN SHE WAS DIAGNOSED WITH BREAST CANCER AT FIRST (THE PA
     Route: 048
  4. FASLODEX [Concomitant]
     Active Substance: FULVESTRANT
     Indication: Targeted cancer therapy
     Dosage: UNK (SHE TOOK IT IN DAY 1 THEN 15 (DURING TAKING KISQALI) THEN DAY 28 (AFTER STOPPING KISQALI), THEN
     Route: 065
     Dates: start: 20230218
  5. XGEVA [Concomitant]
     Active Substance: DENOSUMAB
     Indication: Osteoporosis
     Dosage: UNK, (WITH DOSE 60 (BEFORE KNOWING  THE METASTATIC CANCER IN BONES) THEN NOW WITH DOSE 120 ) (SHE ST
     Route: 065
  6. CALCIUM [Concomitant]
     Active Substance: CALCIUM
     Indication: Bone disorder
     Dosage: UNK, (BEFORE STARTING KISQALI AND XGEVA/ STOPPED, 1 INJECTION MONTHLY)
     Route: 065
  7. CALCIUM [Concomitant]
     Active Substance: CALCIUM
     Indication: Neoplasm malignant
     Dosage: 1 DOSAGE FORM, QD (INCREASED THE DOSE AFTER CANCER AND OSTEOPOROSIS, BEFORE STARTING KISQALI/ ONGOIN
     Route: 065
  8. CALCIUM [Concomitant]
     Active Substance: CALCIUM
     Indication: Osteoporosis
  9. ALBUMIN HUMAN [Concomitant]
     Active Substance: ALBUMIN HUMAN
     Indication: Hepatic enzyme increased
     Dosage: 1 DOSAGE FORM, BID (WHICH DISCOVERED AFTER  HOSPITALIZATION AND STOPPING KISQALI)
     Route: 065

REACTIONS (9)
  - Decreased immune responsiveness [Recovered/Resolved]
  - Haemoglobin decreased [Recovered/Resolved]
  - White blood cell count decreased [Recovered/Resolved]
  - Fatigue [Recovered/Resolved]
  - Hepatic enzyme increased [Not Recovered/Not Resolved]
  - Bone pain [Recovered/Resolved]
  - Fracture [Recovered/Resolved]
  - Tumour marker increased [Not Recovered/Not Resolved]
  - Disease recurrence [Not Recovered/Not Resolved]

NARRATIVE: CASE EVENT DATE: 20230218
